FAERS Safety Report 13875604 (Version 1)
Quarter: 2017Q3

REPORT INFORMATION
  Report Type: Spontaneous
  Country: BR (occurrence: BR)
  Receive Date: 20170817
  Receipt Date: 20170817
  Transmission Date: 20171127
  Serious: Yes (Other)
  Sender: FDA-Public Use
  Company Number: BR-AMGEN-BRASP2015018399

PATIENT
  Age: 14 Year
  Sex: Male

DRUGS (2)
  1. ENBREL [Suspect]
     Active Substance: ETANERCEPT
     Dosage: 0.7 ML, WEEKLY
     Route: 065
     Dates: start: 201502, end: 2016
  2. ENBREL [Suspect]
     Active Substance: ETANERCEPT
     Indication: PSORIASIS
     Dosage: 25 MG, WEEKLY
     Route: 065
     Dates: end: 201502

REACTIONS (5)
  - Inflammation [Unknown]
  - Drug effect incomplete [Unknown]
  - Pyrexia [Unknown]
  - Zika virus infection [Unknown]
  - Blister [Unknown]

NARRATIVE: CASE EVENT DATE: 20150208
